FAERS Safety Report 7388448-7 (Version None)
Quarter: 2011Q2

REPORT INFORMATION
  Report Type: 
  Country: None (occurrence: None)
  Receive Date: 20110401
  Receipt Date: 20110330
  Transmission Date: 20111010
  Serious: Yes (Other)
  Sender: FDA-Public Use
  Company Number: BR-PFIZER INC-2011070477

PATIENT
  Age: 33 Year
  Sex: Female
  Weight: 74 kg

DRUGS (2)
  1. DIMINUT [Concomitant]
     Indication: CONTRACEPTION
     Dosage: UNK
  2. DOSTINEX [Suspect]
     Dosage: 0.5 MG, 2X/DAY
     Route: 048
     Dates: start: 20110328, end: 20110328

REACTIONS (3)
  - LACTATION DISORDER [None]
  - INSOMNIA [None]
  - BREAST PAIN [None]
